FAERS Safety Report 21355705 (Version 1)
Quarter: 2022Q3

REPORT INFORMATION
  Report Type: Spontaneous
  Country: US (occurrence: US)
  Receive Date: 20220920
  Receipt Date: 20220920
  Transmission Date: 20221026
  Serious: Yes (Other)
  Sender: FDA-Public Use
  Company Number: US-THERAPEUTICSMD-2022TMD00485

PATIENT
  Age: 27 Year
  Sex: Female

DRUGS (2)
  1. ANNOVERA [Suspect]
     Active Substance: ETHINYL ESTRADIOL\SEGESTERONE ACETATE
     Dosage: 1 RING
     Route: 067
     Dates: start: 20210923, end: 202203
  2. ELURYNG [Suspect]
     Active Substance: ETHINYL ESTRADIOL\ETONOGESTREL
     Dosage: UNK
     Dates: start: 20220322

REACTIONS (5)
  - Deep vein thrombosis [Unknown]
  - Muscle spasms [Unknown]
  - Abdominal distension [Unknown]
  - Weight increased [Unknown]
  - Limb injury [Unknown]

NARRATIVE: CASE EVENT DATE: 20220401
